FAERS Safety Report 11980427 (Version 2)
Quarter: 2016Q1

REPORT INFORMATION
  Report Type: Spontaneous
  Country: US (occurrence: US)
  Receive Date: 20160129
  Receipt Date: 20160224
  Transmission Date: 20160526
  Serious: Yes (Hospitalization)
  Sender: FDA-Public Use
  Company Number: US-ELI_LILLY_AND_COMPANY-US201601007000

PATIENT
  Age: 60 Year
  Sex: Female
  Weight: 129.71 kg

DRUGS (3)
  1. HUMULIN R [Suspect]
     Active Substance: INSULIN HUMAN
     Indication: TYPE 2 DIABETES MELLITUS
     Dosage: 56 U, QD
     Route: 058
     Dates: start: 20150424, end: 20151120
  2. HUMULIN R [Suspect]
     Active Substance: INSULIN HUMAN
     Dosage: 56 U, SINGLE
     Route: 058
     Dates: start: 20151120, end: 20151120
  3. HUMULIN R [Suspect]
     Active Substance: INSULIN HUMAN
     Dosage: UNK UNK, UNKNOWN
     Route: 058
     Dates: start: 20160201

REACTIONS (2)
  - Hypoglycaemia [Recovered/Resolved]
  - Incorrect dose administered [Recovered/Resolved]

NARRATIVE: CASE EVENT DATE: 20151120
